FAERS Safety Report 6371394-5 (Version None)
Quarter: 2009Q3

REPORT INFORMATION
  Report Type: 
  Country: None (occurrence: None)
  Receive Date: 20090918
  Receipt Date: 20090918
  Transmission Date: 20100115
  Serious: Yes (Hospitalization)
  Sender: FDA-Public Use
  Company Number: None

PATIENT
  Sex: Female
  Weight: 48.9 kg

DRUGS (9)
  1. CARBOPLATIN [Suspect]
     Dosage: 768 MG
     Dates: end: 20070718
  2. TAXOL [Suspect]
     Dosage: 0 MG
     Dates: end: 20070718
  3. AUGMENTIN [Concomitant]
  4. COMPAZINE [Concomitant]
  5. DEXAMETHASONE 4MG TAB [Concomitant]
  6. HYDROCODONE APA [Concomitant]
  7. IBUPROFEN [Concomitant]
  8. OXYCODONE HCL [Concomitant]
  9. ZOFRAN [Concomitant]

REACTIONS (4)
  - CYANOSIS [None]
  - DRUG HYPERSENSITIVITY [None]
  - LOSS OF CONSCIOUSNESS [None]
  - RESPIRATORY ARREST [None]
